FAERS Safety Report 4956668-4 (Version None)
Quarter: 2006Q1

REPORT INFORMATION
  Report Type: 
  Country: None (occurrence: None)
  Receive Date: 20060323
  Receipt Date: 20060310
  Transmission Date: 20060701
  Serious: Yes (Other)
  Sender: FDA-Public Use
  Company Number: 2006-BP-02729RO

PATIENT
  Age: 40 Year
  Sex: Male

DRUGS (5)
  1. AZATHIOPRINE [Suspect]
     Indication: CROHN'S DISEASE
     Dosage: 200 MG, PO
     Route: 048
     Dates: start: 20001201
  2. CALCIUM (CALCIUM) [Concomitant]
  3. VITAMIN D [Concomitant]
  4. H2 RECEPTOR ANTAGONIST (H2-RECEPTOR ANTAGONISTS) [Concomitant]
  5. VITAMIN B12 (COBAMAMIDE) [Concomitant]

REACTIONS (7)
  - HEPATIC CIRRHOSIS [None]
  - LIVER FUNCTION TEST ABNORMAL [None]
  - PLATELET COUNT DECREASED [None]
  - SPLENOMEGALY [None]
  - VARICES OESOPHAGEAL [None]
  - VASODILATATION [None]
  - WHITE BLOOD CELL COUNT DECREASED [None]
